FAERS Safety Report 6931973-0 (Version None)
Quarter: 2010Q3

REPORT INFORMATION
  Report Type: 
  Country: None (occurrence: None)
  Receive Date: 20100812
  Receipt Date: 20090409
  Transmission Date: 20110219
  Serious: No
  Sender: FDA-Public Use
  Company Number: 2009-01085

PATIENT
  Age: 32 Year
  Sex: Female
  Weight: 72.5755 kg

DRUGS (1)
  1. ZICAM COLD REMEDY RAPIDMELTS WITH VITAMIN C [Suspect]
     Dosage: 5 DOSES
     Dates: start: 20090331, end: 20090401

REACTIONS (2)
  - AGEUSIA [None]
  - ANOSMIA [None]
